FAERS Safety Report 15614841 (Version 1)
Quarter: 2018Q4

REPORT INFORMATION
  Report Type: Report from Study
  Country: US (occurrence: US)
  Receive Date: 20181114
  Receipt Date: 20181114
  Transmission Date: 20190205
  Serious: Yes (Disabling)
  Sender: FDA-Public Use
  Company Number: US-SUN PHARMACEUTICAL INDUSTRIES LTD-2018US-190836

PATIENT
  Age: 51 Year
  Sex: Male

DRUGS (3)
  1. OFEV [Interacting]
     Active Substance: NINTEDANIB
     Indication: IDIOPATHIC PULMONARY FIBROSIS
     Dosage: 200 MG, DAILY
     Route: 048
     Dates: start: 20180205, end: 20180525
  2. OFEV [Interacting]
     Active Substance: NINTEDANIB
     Dosage: 100 MG, BID
     Route: 048
     Dates: end: 20180822
  3. BACTRIM [Suspect]
     Active Substance: SULFAMETHOXAZOLE\TRIMETHOPRIM
     Indication: CYST
     Dosage: UNK
     Route: 065

REACTIONS (14)
  - Nail discolouration [Not Recovered/Not Resolved]
  - Pain [Unknown]
  - Skin discolouration [Not Recovered/Not Resolved]
  - Peripheral coldness [Not Recovered/Not Resolved]
  - Walking disability [Unknown]
  - Headache [Recovered/Resolved]
  - Skin discolouration [Recovered/Resolved]
  - Clubbing [Unknown]
  - Dizziness [Recovered/Resolved]
  - Hypoaesthesia [Recovered/Resolved]
  - Rash macular [Unknown]
  - Drug interaction [Unknown]
  - Swelling [Unknown]
  - Renal disorder [Unknown]

NARRATIVE: CASE EVENT DATE: 2018
